FAERS Safety Report 20429628 (Version 1)
Quarter: 2022Q1

REPORT INFORMATION
  Report Type: Report from Study
  Country: FR (occurrence: FR)
  Receive Date: 20220204
  Receipt Date: 20220204
  Transmission Date: 20220423
  Serious: Yes (Hospitalization)
  Sender: FDA-Public Use
  Company Number: FR-SERVIER-S19007098

PATIENT

DRUGS (28)
  1. ONCASPAR [Suspect]
     Active Substance: PEGASPARGASE
     Indication: Acute lymphocytic leukaemia
     Dosage: 1063 IU, ON DAY 12
     Route: 042
     Dates: start: 20181225
  2. ONCASPAR [Suspect]
     Active Substance: PEGASPARGASE
     Dosage: 1250 IU, ON DAY 15
     Route: 042
     Dates: start: 20190211
  3. ONCASPAR [Suspect]
     Active Substance: PEGASPARGASE
     Dosage: UNK
     Route: 042
  4. METHOTREXATE [Suspect]
     Active Substance: METHOTREXATE
     Indication: Acute lymphocytic leukaemia
     Dosage: 12 MG, ON DAY 13
     Route: 037
     Dates: start: 20181226, end: 20181226
  5. METHOTREXATE [Suspect]
     Active Substance: METHOTREXATE
     Dosage: 12 MG, ON DAY 3
     Route: 037
     Dates: start: 20190130, end: 20190130
  6. METHOTREXATE [Suspect]
     Active Substance: METHOTREXATE
     Dosage: 12 MG, ON DAY 9
     Route: 037
     Dates: start: 20190410, end: 20190410
  7. METHOTREXATE [Suspect]
     Active Substance: METHOTREXATE
     Dosage: 4340 MG, ON DAY 8
     Route: 042
     Dates: start: 20190409, end: 20190409
  8. METHOTREXATE [Suspect]
     Active Substance: METHOTREXATE
     Dosage: UNK
     Route: 065
     Dates: start: 20190412, end: 20190412
  9. MERCAPTOPURINE [Suspect]
     Active Substance: MERCAPTOPURINE
     Indication: Acute lymphocytic leukaemia
     Dosage: 50 MG, QD, ON DAYS 1 TO 14
     Route: 048
     Dates: start: 20190128
  10. MERCAPTOPURINE [Suspect]
     Active Substance: MERCAPTOPURINE
     Dosage: 21MG, QD, ON DAYS 1 TO 56
     Route: 048
     Dates: start: 20190402
  11. TN UNSPECIFIED [Concomitant]
     Indication: Pain
     Dosage: 1200 MG, QD
     Route: 048
     Dates: start: 20181213
  12. TN UNSPECIFIED [Concomitant]
     Indication: Pyrexia
  13. TN UNESPECIFIED [Concomitant]
     Indication: Acute lymphocytic leukaemia
     Dosage: 860 MG, D1
     Route: 040
     Dates: start: 20190128
  14. TN UNESPECIFIED [Concomitant]
     Indication: Acute lymphocytic leukaemia
     Dosage: 15 MG , D3
     Route: 037
     Dates: start: 20190128
  15. TN UNESPECIFIED [Concomitant]
     Indication: Acute lymphocytic leukaemia
     Dosage: 12 MG, D3
     Route: 037
     Dates: start: 20190130
  16. TN UNESPECIFIED [Concomitant]
     Indication: Acute lymphocytic leukaemia
     Dosage: 1.3 MG, D15
     Route: 042
     Dates: start: 20190215
  17. TN UNESPECIFIED [Concomitant]
     Indication: Acute lymphocytic leukaemia
     Dosage: 65 MG
     Route: 042
     Dates: start: 20190130
  18. BACTRIM [Concomitant]
     Active Substance: SULFAMETHOXAZOLE\TRIMETHOPRIM
     Indication: Antifungal prophylaxis
     Dosage: 600 MG, 3X A WEEK
     Route: 048
     Dates: start: 20181221
  19. Calcidose [Concomitant]
     Indication: Prophylaxis
     Dosage: 500 MG, QD
     Route: 048
     Dates: start: 20181221
  20. CHOLECALCIFEROL [Concomitant]
     Active Substance: CHOLECALCIFEROL
     Indication: Prophylaxis
     Dosage: 100 MILLION IU, QD
     Route: 048
     Dates: start: 20181221
  21. MINERAL OIL [Concomitant]
     Active Substance: MINERAL OIL
     Indication: Constipation
     Dosage: 15 ML, QD
     Route: 048
     Dates: start: 20181223
  22. PHLOROGLUCINOL [Concomitant]
     Active Substance: PHLOROGLUCINOL
     Indication: Abdominal pain
     Dosage: 240 MG, QD
     Route: 048
     Dates: start: 20181228, end: 20181230
  23. PHLOROGLUCINOL [Concomitant]
     Active Substance: PHLOROGLUCINOL
     Dosage: 80 MG, QD
     Route: 042
     Dates: start: 20181231
  24. DUPHALAC [Concomitant]
     Active Substance: LACTULOSE
     Indication: Constipation
     Dosage: 15 ML, QD
     Route: 048
     Dates: start: 20190122
  25. LEUCOVORIN CALCIUM [Concomitant]
     Active Substance: LEUCOVORIN CALCIUM
     Indication: Overdose
     Dosage: 24 MG, QD
     Route: 042
     Dates: start: 20190411, end: 20190412
  26. LEUCOVORIN CALCIUM [Concomitant]
     Active Substance: LEUCOVORIN CALCIUM
     Dosage: 24 MG, QD
     Route: 042
     Dates: start: 20190425, end: 20190426
  27. LEUCOVORIN CALCIUM [Concomitant]
     Active Substance: LEUCOVORIN CALCIUM
     Dosage: 24 MG, QD
     Route: 042
     Dates: start: 20190508, end: 20190509
  28. LEUCOVORIN CALCIUM [Concomitant]
     Active Substance: LEUCOVORIN CALCIUM
     Dosage: 24 MG, QD
     Route: 042
     Dates: start: 20190522, end: 20190523

REACTIONS (1)
  - Dehydration [Recovered/Resolved]

NARRATIVE: CASE EVENT DATE: 20190416
